FAERS Safety Report 26114101 (Version 1)
Quarter: 2025Q4

REPORT INFORMATION
  Report Type: Spontaneous
  Country: US (occurrence: US)
  Receive Date: 20251202
  Receipt Date: 20251202
  Transmission Date: 20260117
  Serious: No
  Sender: INSUD PHARMA
  Company Number: US-INSUD PHARMA-2511US09918

PATIENT

DRUGS (15)
  1. SLYND [Suspect]
     Active Substance: DROSPIRENONE
     Indication: Menstrual cycle management
     Dosage: UNK, AS DIRECTED
     Route: 048
     Dates: start: 202410, end: 20250826
  2. SLYND [Suspect]
     Active Substance: DROSPIRENONE
     Indication: Dysmenorrhoea
  3. SLYND [Suspect]
     Active Substance: DROSPIRENONE
     Indication: Oligomenorrhoea
  4. SLYND [Suspect]
     Active Substance: DROSPIRENONE
     Indication: Intermenstrual bleeding
  5. METFORMIN HYDROCHLORIDE [Concomitant]
     Active Substance: METFORMIN HYDROCHLORIDE
  6. CITALOPRAM [Concomitant]
     Active Substance: CITALOPRAM
  7. OZEMPIC [Concomitant]
     Active Substance: SEMAGLUTIDE
     Dosage: INJECTION
  8. HYDROXYCHLOROQUINE [Concomitant]
     Active Substance: HYDROXYCHLOROQUINE
  9. MEDROXYPROGESTERONE ACETATE [Concomitant]
     Active Substance: MEDROXYPROGESTERONE ACETATE
     Dosage: INJECTION
     Dates: start: 202508
  10. FISH OIL [Concomitant]
     Active Substance: FISH OIL
     Dosage: UNK PILLS, QD
  11. MELATONIN [Concomitant]
     Active Substance: MELATONIN
     Indication: Sleep disorder
     Dosage: AT NIGHT
  12. CO Q 10 [UBIDECARENONE] [Concomitant]
  13. DIETARY SUPPLEMENT [Concomitant]
     Active Substance: DIETARY SUPPLEMENT
  14. VITAMIN D3 [Concomitant]
     Active Substance: CHOLECALCIFEROL
  15. VITAMIN B12 [Concomitant]
     Active Substance: CYANOCOBALAMIN

REACTIONS (3)
  - Blood triglycerides increased [Recovering/Resolving]
  - Amenorrhoea [Unknown]
  - Product prescribing issue [Unknown]

NARRATIVE: CASE EVENT DATE: 20241001
